FAERS Safety Report 6664546-8 (Version None)
Quarter: 2010Q2

REPORT INFORMATION
  Report Type: 
  Country: None (occurrence: None)
  Receive Date: 20100401
  Receipt Date: 20100318
  Transmission Date: 20101027
  Serious: Yes (Other)
  Sender: FDA-Public Use
  Company Number: DE-PFIZER INC-2006084765

PATIENT
  Sex: Male
  Weight: 74 kg

DRUGS (6)
  1. SUNITINIB MALATE [Suspect]
     Indication: METASTATIC RENAL CELL CARCINOMA
     Dosage: 50 MG, 1X/DAY
     Route: 048
     Dates: start: 20060118
  2. PANTOPRAZOLE SODIUM [Concomitant]
     Route: 048
     Dates: start: 20060306, end: 20060626
  3. ACCUZIDE [Concomitant]
     Route: 048
     Dates: start: 20030101
  4. SUCRALFATE [Concomitant]
     Route: 048
     Dates: start: 20060315
  5. HYALURONIC ACID [Concomitant]
     Route: 048
     Dates: start: 20060201
  6. NORVASC [Concomitant]
     Dosage: 5 MG
     Route: 048
     Dates: start: 20060329, end: 20060625

REACTIONS (1)
  - ABDOMINAL PAIN UPPER [None]
